FAERS Safety Report 4837704-2 (Version None)
Quarter: 2005Q4

REPORT INFORMATION
  Report Type: 
  Country: None (occurrence: None)
  Receive Date: 20051128
  Receipt Date: 20041118
  Transmission Date: 20060501
  Serious: Yes (Hospitalization)
  Sender: FDA-Public Use
  Company Number: DE-MERCK-0411DEU00408

PATIENT
  Age: 51 Year
  Sex: Male
  Weight: 79 kg

DRUGS (1)
  1. VIOXX [Suspect]
     Indication: OSTEOPOROSIS
     Route: 048
     Dates: start: 20040528, end: 20041007

REACTIONS (4)
  - ACUTE MYOCARDIAL INFARCTION [None]
  - CORONARY ARTERY DISEASE [None]
  - MUSCULOSKELETAL PAIN [None]
  - PROCEDURAL PAIN [None]
